FAERS Safety Report 16961631 (Version 2)
Quarter: 2019Q4

REPORT INFORMATION
  Report Type: Report from Study
  Country: US (occurrence: US)
  Receive Date: 20191025
  Receipt Date: 20191104
  Transmission Date: 20200122
  Serious: Yes (Hospitalization)
  Sender: FDA-Public Use
  Company Number: US-ROCHE-2444275

PATIENT
  Age: 69 Year
  Sex: Male
  Weight: 72.19 kg

DRUGS (22)
  1. ATOVAQUONE. [Concomitant]
     Active Substance: ATOVAQUONE
     Route: 065
     Dates: start: 20190819
  2. PREDNISONE. [Concomitant]
     Active Substance: PREDNISONE
  3. OMEPRAZOLE. [Concomitant]
     Active Substance: OMEPRAZOLE
     Route: 065
     Dates: start: 20190702
  4. NYSTATIN. [Concomitant]
     Active Substance: NYSTATIN
     Route: 065
     Dates: start: 20190628
  5. LOPERAMIDE [Concomitant]
     Active Substance: LOPERAMIDE
     Route: 065
     Dates: start: 20190826
  6. DOCUSATE SODIUM. [Concomitant]
     Active Substance: DOCUSATE SODIUM
     Route: 065
     Dates: start: 20190628
  7. VENETOCLAX. [Suspect]
     Active Substance: VENETOCLAX
     Indication: B-CELL LYMPHOMA
     Route: 048
     Dates: start: 20190525, end: 20190813
  8. ACYCLOVIR [ACICLOVIR] [Concomitant]
     Active Substance: ACYCLOVIR
     Route: 065
     Dates: start: 20190528
  9. ERGOCALCIFEROL. [Concomitant]
     Active Substance: ERGOCALCIFEROL
     Route: 065
     Dates: start: 20190903
  10. VANCOMYCIN [Concomitant]
     Active Substance: VANCOMYCIN
  11. FLUTICASONE PROPIONATE. [Concomitant]
     Active Substance: FLUTICASONE PROPIONATE
     Route: 065
     Dates: start: 20190506
  12. ONDANSETRON HCL [Concomitant]
     Active Substance: ONDANSETRON HYDROCHLORIDE
     Route: 065
     Dates: start: 20190623
  13. LEVOFLOXACIN. [Concomitant]
     Active Substance: LEVOFLOXACIN
     Route: 065
     Dates: start: 20190903
  14. FILGRASTIM [Concomitant]
     Active Substance: FILGRASTIM
     Route: 065
     Dates: start: 20190529
  15. POLYETHYLENE GLYCOL [Concomitant]
     Active Substance: POLYETHYLENE GLYCOLS
     Route: 065
     Dates: start: 20190623
  16. SENNOSIDES. [Concomitant]
     Active Substance: SENNOSIDES
     Route: 065
     Dates: start: 20190628
  17. PROCHLORPERAZINE MALEATE. [Concomitant]
     Active Substance: PROCHLORPERAZINE MALEATE
     Route: 065
     Dates: start: 20190623
  18. ATORVASTATIN [Concomitant]
     Active Substance: ATORVASTATIN
  19. LEVOTHYROXINE. [Concomitant]
     Active Substance: LEVOTHYROXINE
  20. POTASSIUM CHLORIDE. [Concomitant]
     Active Substance: POTASSIUM CHLORIDE
     Route: 065
     Dates: start: 20190903
  21. OXYCODONE [Concomitant]
     Active Substance: OXYCODONE
     Route: 065
     Dates: start: 20190903
  22. MAGNESIUM CITRATE. [Concomitant]
     Active Substance: MAGNESIUM CITRATE
     Route: 065
     Dates: start: 20190626

REACTIONS (8)
  - Diarrhoea [Unknown]
  - Bacteraemia [Unknown]
  - Abdominal pain [Unknown]
  - Lumbar vertebral fracture [Recovered/Resolved]
  - Thrombocytopenia [Unknown]
  - Spinal osteoarthritis [Unknown]
  - Hypotension [Unknown]
  - Back pain [Unknown]

NARRATIVE: CASE EVENT DATE: 20190816
